FAERS Safety Report 23724246 (Version 6)
Quarter: 2024Q4

REPORT INFORMATION
  Report Type: Spontaneous
  Country: US (occurrence: US)
  Receive Date: 20240409
  Receipt Date: 20241121
  Transmission Date: 20250115
  Serious: No
  Sender: KARYOPHARM THERAPEUTICS
  Company Number: US-KARYOPHARM-2024KPT000881

PATIENT

DRUGS (30)
  1. XPOVIO [Suspect]
     Active Substance: SELINEXOR
     Indication: Plasma cell myeloma refractory
     Dosage: 100 MG, WEEKLY
     Route: 048
     Dates: start: 20240209, end: 2024
  2. XPOVIO [Suspect]
     Active Substance: SELINEXOR
     Dosage: 70 MG
     Dates: start: 2024
  3. XPOVIO [Suspect]
     Active Substance: SELINEXOR
     Dosage: 60 MG, WEEKLY
     Dates: start: 202408, end: 2024
  4. XPOVIO [Suspect]
     Active Substance: SELINEXOR
     Dosage: 60 MG, WEEKLY
     Route: 048
     Dates: start: 202410
  5. SPIRONOLACTONE [Concomitant]
     Active Substance: SPIRONOLACTONE
  6. LAMISIL [Concomitant]
     Active Substance: TERBINAFINE HYDROCHLORIDE
  7. TRAMADOL [Concomitant]
     Active Substance: TRAMADOL
  8. HYDROCHLOROTHIAZIDE\VALSARTAN [Concomitant]
     Active Substance: HYDROCHLOROTHIAZIDE\VALSARTAN
  9. HYDROCHLOROTHIAZIDE\TRIAMTERENE [Concomitant]
     Active Substance: HYDROCHLOROTHIAZIDE\TRIAMTERENE
  10. ALBUTEROL SULFATE [Concomitant]
     Active Substance: ALBUTEROL SULFATE
  11. ATENOLOL [Concomitant]
     Active Substance: ATENOLOL
  12. ATORVASTATIN [Concomitant]
     Active Substance: ATORVASTATIN
  13. ATROVENT HFA [Concomitant]
     Active Substance: IPRATROPIUM BROMIDE
  14. DEXAMETHASONE [Concomitant]
     Active Substance: DEXAMETHASONE
  15. FUROSEMIDE [Concomitant]
     Active Substance: FUROSEMIDE
  16. GABAPENTIN [Concomitant]
     Active Substance: GABAPENTIN
  17. HYDROCHLOROTHIAZIDE [Concomitant]
     Active Substance: HYDROCHLOROTHIAZIDE
  18. HYDROCORTISONE [Concomitant]
     Active Substance: HYDROCORTISONE
  19. LATANOPROST [Concomitant]
     Active Substance: LATANOPROST
  20. LOSARTAN [Concomitant]
     Active Substance: LOSARTAN
  21. METRONIDAZOLE [Concomitant]
     Active Substance: METRONIDAZOLE
  22. MIRTAZAPINE [Concomitant]
     Active Substance: MIRTAZAPINE
  23. NITROLINGUAL [Concomitant]
     Active Substance: NITROGLYCERIN
  24. OCUFLOX [Concomitant]
     Active Substance: OFLOXACIN
  25. PREDNISONE [Concomitant]
     Active Substance: PREDNISONE
  26. ROSUVASTATIN [Concomitant]
     Active Substance: ROSUVASTATIN
  27. TRELEGY ELLIPTA [Concomitant]
     Active Substance: FLUTICASONE FUROATE\UMECLIDINIUM BROMIDE\VILANTEROL TRIFENATATE
  28. ASPIRIN [Concomitant]
     Active Substance: ASPIRIN
  29. POTASSIUM CHLORIDE [Concomitant]
     Active Substance: POTASSIUM CHLORIDE
  30. NITROSTAT [Concomitant]
     Active Substance: NITROGLYCERIN

REACTIONS (9)
  - White blood cell count decreased [Recovered/Resolved]
  - Somnolence [Unknown]
  - Pneumonia [Recovering/Resolving]
  - Nausea [Not Recovered/Not Resolved]
  - Dyspnoea [Unknown]
  - Constipation [Not Recovered/Not Resolved]
  - Diarrhoea [Not Recovered/Not Resolved]
  - Decreased appetite [Unknown]
  - Weight decreased [Unknown]

NARRATIVE: CASE EVENT DATE: 20240101
